FAERS Safety Report 8831940 (Version 3)
Quarter: 2013Q1

REPORT INFORMATION
  Report Type: Report from Study
  Country: DE (occurrence: DE)
  Receive Date: 20121009
  Receipt Date: 20130211
  Transmission Date: 20140127
  Serious: Yes (Life-Threatening)
  Sender: FDA-Public Use
  Company Number: DE-PFIZER INC-2012245840

PATIENT
  Age: 71 Year
  Sex: Female
  Weight: 74 kg

DRUGS (8)
  1. TEMSIROLIMUS [Suspect]
     Indication: METASTATIC MALIGNANT MELANOMA
     Dosage: 15 MG, UNK
     Route: 042
     Dates: start: 20120703, end: 20120925
  2. TEMSIROLIMUS [Suspect]
     Dosage: 15 MG, UNK
     Route: 042
     Dates: start: 20121009
  3. TROFOSFAMIDE [Suspect]
     Indication: METASTATIC MALIGNANT MELANOMA
     Dosage: 100 MG, UNK
     Route: 048
     Dates: start: 20120703
  4. PIOGLITAZONE HYDROCHLORIDE [Suspect]
     Indication: METASTATIC MALIGNANT MELANOMA
     Dosage: 60 MG, UNK
     Route: 048
     Dates: start: 20120703
  5. ETORICOXIB [Suspect]
     Indication: METASTATIC MALIGNANT MELANOMA
     Dosage: 60 MG, UNK
     Route: 048
     Dates: start: 20120703
  6. ADREKAR [Concomitant]
     Indication: SUPRAVENTRICULAR TACHYCARDIA
     Dosage: 6 MG, UNK
     Route: 042
     Dates: start: 20121002, end: 20121002
  7. OLMESARTAN [Concomitant]
     Indication: HYPERTONIA
     Dosage: 10 MG, 1X/DAY, 1-0-0
     Route: 048
     Dates: start: 20121002
  8. BISOPROLOL [Concomitant]
     Indication: HYPERTONIA
     Dosage: 1.25 MG, UNK, 1-0-0
     Route: 048
     Dates: start: 20121002

REACTIONS (1)
  - Supraventricular tachycardia [Recovered/Resolved]
